FAERS Safety Report 7194369-5 (Version None)
Quarter: 2010Q4

REPORT INFORMATION
  Report Type: 
  Country: None (occurrence: None)
  Receive Date: 20101223
  Receipt Date: 20101221
  Transmission Date: 20110411
  Serious: Yes (Life-Threatening, Hospitalization, Disabling)
  Sender: FDA-Public Use
  Company Number: CH-ROCHE-743627

PATIENT
  Age: 13 Year
  Sex: Male

DRUGS (2)
  1. ROACCUTAN [Suspect]
     Indication: ACNE
     Dosage: STARTING DOSE
     Route: 048
     Dates: start: 20041215, end: 20050301
  2. ROACCUTAN [Suspect]
     Dosage: MAINTENANCE DOSE; LONG TERM USE
     Route: 048
     Dates: end: 20051101

REACTIONS (5)
  - ANXIETY [None]
  - DEPRESSION [None]
  - SLEEP DISORDER [None]
  - SUICIDAL IDEATION [None]
  - SUICIDE ATTEMPT [None]
